FAERS Safety Report 6011896-4 (Version None)
Quarter: 2008Q4

REPORT INFORMATION
  Report Type: 
  Country: None (occurrence: None)
  Receive Date: 20081218
  Receipt Date: 20080930
  Transmission Date: 20090506
  Serious: No
  Sender: FDA-Public Use
  Company Number: US-ASTRAZENECA-2008UW21043

PATIENT
  Age: 60 Year
  Sex: Female

DRUGS (1)
  1. CRESTOR [Suspect]
     Dosage: DAILY
     Route: 048

REACTIONS (1)
  - RESTLESS LEGS SYNDROME [None]
